FAERS Safety Report 13006141 (Version 1)
Quarter: 2016Q4

REPORT INFORMATION
  Report Type: Spontaneous
  Country: US (occurrence: US)
  Receive Date: 20161206
  Receipt Date: 20161206
  Transmission Date: 20170207
  Serious: No
  Sender: FDA-Public Use
  Company Number: None

PATIENT
  Age: 61 Year
  Sex: Male

DRUGS (1)
  1. IBRANCE [Suspect]
     Active Substance: PALBOCICLIB
     Indication: BREAST CANCER MALE
     Dosage: 125MG QD X 21 DAYS PO
     Route: 048

REACTIONS (2)
  - Dyspnoea [None]
  - Lung disorder [None]

NARRATIVE: CASE EVENT DATE: 20161205
